FAERS Safety Report 8392001-6 (Version None)
Quarter: 2012Q2

REPORT INFORMATION
  Report Type: 
  Country: None (occurrence: None)
  Receive Date: 20120529
  Receipt Date: 20120517
  Transmission Date: 20120825
  Serious: Yes (Hospitalization, Other)
  Sender: FDA-Public Use
  Company Number: US-ASTRAZENECA-2011SE10164

PATIENT
  Age: 64 Year
  Sex: Female

DRUGS (5)
  1. LOVASTATIN [Concomitant]
  2. NEXIUM [Suspect]
     Route: 048
  3. LISINOPRIL [Suspect]
     Route: 048
  4. METOPROLOL TARTRATE [Concomitant]
  5. FISH OIL [Concomitant]

REACTIONS (3)
  - URINARY TRACT INFECTION [None]
  - BASAL CELL CARCINOMA [None]
  - COUGH [None]
